FAERS Safety Report 12982535 (Version 1)
Quarter: 2016Q4

REPORT INFORMATION
  Report Type: Spontaneous
  Country: US (occurrence: US)
  Receive Date: 20161129
  Receipt Date: 20161129
  Transmission Date: 20170207
  Serious: Yes (Other)
  Sender: FDA-Public Use
  Company Number: US-PFIZER INC-2016550159

PATIENT
  Age: 96 Year
  Sex: Male
  Weight: 88 kg

DRUGS (2)
  1. TIKOSYN [Suspect]
     Active Substance: DOFETILIDE
     Indication: ATRIAL FIBRILLATION
     Dosage: 250 UG, 2X/DAY
  2. TIKOSYN [Suspect]
     Active Substance: DOFETILIDE
     Dosage: 250 UG, 3X/DAY
     Route: 048

REACTIONS (4)
  - Intentional product misuse [Unknown]
  - Drug effect incomplete [Unknown]
  - Disease progression [Not Recovered/Not Resolved]
  - Deafness [Not Recovered/Not Resolved]
